FAERS Safety Report 5664097-3 (Version None)
Quarter: 2008Q1

REPORT INFORMATION
  Report Type: 
  Country: None (occurrence: None)
  Receive Date: 20080312
  Receipt Date: 20080302
  Transmission Date: 20080703
  Serious: No
  Sender: FDA-Public Use
  Company Number: 20084822

PATIENT
  Age: 34 Year
  Sex: Male

DRUGS (1)
  1. LIORESAL [Suspect]
     Indication: MUSCLE SPASTICITY
     Dosage: 751.3 MCG, DAILY, INTRATHECAL
     Route: 037

REACTIONS (6)
  - ABNORMAL BEHAVIOUR [None]
  - DEVICE FAILURE [None]
  - HEART RATE INCREASED [None]
  - HYPERTENSION [None]
  - INCORRECT DOSE ADMINISTERED [None]
  - MUSCLE SPASMS [None]
